FAERS Safety Report 8589700-X (Version None)
Quarter: 2012Q3

REPORT INFORMATION
  Report Type: 
  Country: None (occurrence: None)
  Receive Date: 20120813
  Receipt Date: 20120801
  Transmission Date: 20120928
  Serious: Yes (Hospitalization, Other)
  Sender: FDA-Public Use
  Company Number: JP-ROCHE-1086705

PATIENT
  Sex: Male

DRUGS (20)
  1. MIRCERA [Suspect]
     Route: 042
     Dates: start: 20120101, end: 20120629
  2. OXAROL [Concomitant]
     Dosage: AFTER IT DIALYZES IT
     Route: 042
     Dates: start: 20120425
  3. URSO 250 [Concomitant]
     Route: 048
  4. ONEALFA [Concomitant]
     Route: 048
     Dates: end: 20120424
  5. LANTUS [Concomitant]
     Route: 058
  6. NOVORAPID [Concomitant]
     Route: 058
  7. LASIX [Concomitant]
     Route: 048
  8. DOPS (JAPAN) [Concomitant]
     Dosage: DIALYSIS DAY
     Route: 048
  9. MIRCERA [Suspect]
     Indication: NEPHROGENIC ANAEMIA
     Route: 042
     Dates: start: 20111125, end: 20120101
  10. RISUMIC [Concomitant]
     Dosage: DIALYSIS DAY
     Route: 048
  11. ALLOPURINOL [Concomitant]
     Route: 048
  12. LEVOCARNITINE [Concomitant]
     Route: 048
     Dates: start: 20120604
  13. IRON SUCROSE [Concomitant]
     Route: 042
     Dates: start: 20120404, end: 20120509
  14. MIRCERA [Suspect]
     Route: 042
     Dates: start: 20120316, end: 20120316
  15. MIRCERA [Suspect]
     Route: 042
     Dates: start: 20120511, end: 20120511
  16. PRECIPITATED CALCIUM CARBONATE [Concomitant]
     Route: 048
  17. MIRCERA [Suspect]
     Route: 042
     Dates: start: 20120608, end: 20120608
  18. CINACALCET HYDROCHLORIDE [Concomitant]
     Route: 048
     Dates: start: 20120227, end: 20120402
  19. LIVACT [Concomitant]
     Route: 048
  20. MIRCERA [Suspect]
     Route: 042
     Dates: start: 20120101, end: 20120101

REACTIONS (1)
  - ANAEMIA [None]
